FAERS Safety Report 10165855 (Version 1)
Quarter: 2014Q2

REPORT INFORMATION
  Report Type: Spontaneous
  Country: US (occurrence: US)
  Receive Date: 20140510
  Receipt Date: 20140510
  Transmission Date: 20141212
  Serious: No
  Sender: FDA-Public Use
  Company Number: US-BRISTOL-MYERS SQUIBB COMPANY-19985605

PATIENT
  Age: 58 Year
  Sex: Male
  Weight: 78 kg

DRUGS (3)
  1. BYDUREON [Suspect]
     Indication: TYPE 2 DIABETES MELLITUS
     Dosage: STARTED 3 MONTHS AGO
     Route: 058
     Dates: start: 2013
  2. METFORMIN HCL [Suspect]
  3. GLYBURIDE [Suspect]

REACTIONS (9)
  - Abdominal pain [Unknown]
  - Pain in jaw [Unknown]
  - Neck pain [Unknown]
  - Flatulence [Unknown]
  - Abdominal distension [Unknown]
  - Constipation [Unknown]
  - Blood glucose increased [Unknown]
  - Fatigue [Unknown]
  - Nodule [Unknown]
